FAERS Safety Report 10256399 (Version 1)
Quarter: 2014Q2

REPORT INFORMATION
  Report Type: Spontaneous
  Country: JP (occurrence: JP)
  Receive Date: 20140624
  Receipt Date: 20140624
  Transmission Date: 20141212
  Serious: Yes (Other)
  Sender: FDA-Public Use
  Company Number: JP-NAPPMUNDI-GBR-2014-0018846

PATIENT
  Sex: 0

DRUGS (1)
  1. OXYCODONE HCL PR TABLET 20 MG [Suspect]
     Indication: CANCER PAIN
     Dosage: 20 MG, DAILY
     Route: 048
     Dates: start: 201405, end: 201405

REACTIONS (2)
  - Delirium [Recovered/Resolved]
  - Renal failure acute [Unknown]
